FAERS Safety Report 5301292-7 (Version None)
Quarter: 2007Q1

REPORT INFORMATION
  Report Type: 
  Country: None (occurrence: None)
  Receive Date: 20070201
  Receipt Date: 20061203
  Transmission Date: 20070707
  Serious: No
  Sender: FDA-Public Use
  Company Number: 2006PV026226

PATIENT
  Age: 61 Year
  Sex: Female
  Weight: 95.2554 kg

DRUGS (6)
  1. BYETTA [Suspect]
     Indication: DIABETES MELLITUS NON-INSULIN-DEPENDENT
     Dosage: 5 MCG; BID; SC
     Route: 058
     Dates: start: 20061122
  2. METFORMIN HCL [Concomitant]
  3. COZAAR [Concomitant]
  4. PROZAC [Concomitant]
  5. MICROZIDE [Concomitant]
  6. LIPITOR [Concomitant]

REACTIONS (4)
  - BLOOD GLUCOSE INCREASED [None]
  - FATIGUE [None]
  - LISTLESS [None]
  - NAUSEA [None]
